FAERS Safety Report 6738542-6 (Version None)
Quarter: 2010Q2

REPORT INFORMATION
  Report Type: 
  Country: None (occurrence: None)
  Receive Date: 20100524
  Receipt Date: 20100519
  Transmission Date: 20101027
  Serious: Yes (Hospitalization)
  Sender: FDA-Public Use
  Company Number: US-ELI_LILLY_AND_COMPANY-US201005005178

PATIENT
  Sex: Male

DRUGS (4)
  1. HUMALOG MIX 75/25 [Suspect]
     Indication: DIABETES MELLITUS
     Dosage: 40 U, EACH MORNING
     Dates: start: 20050101
  2. HUMALOG MIX 75/25 [Suspect]
     Dosage: 20 U, EACH EVENING
     Dates: start: 20050101
  3. HUMALOG MIX 75/25 [Suspect]
     Dosage: 40 U, EACH MORNING
     Dates: start: 20050101
  4. HUMALOG MIX 75/25 [Suspect]
     Dosage: 20 U, EACH EVENING
     Dates: start: 20050101

REACTIONS (4)
  - ASTHENIA [None]
  - MUSCLE INJURY [None]
  - MYOCARDIAL INFARCTION [None]
  - NERVE INJURY [None]
